FAERS Safety Report 11343863 (Version 2)
Quarter: 2015Q3

REPORT INFORMATION
  Report Type: Spontaneous
  Country: US (occurrence: US)
  Receive Date: 20150806
  Receipt Date: 20150925
  Transmission Date: 20151125
  Serious: Yes (Hospitalization)
  Sender: FDA-Public Use
  Company Number: US-PFIZER INC-2015262031

PATIENT
  Age: 20 Year
  Sex: Female
  Weight: 70 kg

DRUGS (3)
  1. DEPAKOTE [Suspect]
     Active Substance: DIVALPROEX SODIUM
     Indication: EPILEPSY
     Dosage: UNK
  2. CELEBREX [Suspect]
     Active Substance: CELECOXIB
     Indication: PAIN
     Dosage: 200 MG, 2X/DAY
     Route: 048
     Dates: start: 20150804, end: 20150809
  3. CELEBREX [Suspect]
     Active Substance: CELECOXIB
     Indication: SWELLING

REACTIONS (10)
  - Balance disorder [Unknown]
  - Tremor [Unknown]
  - Epilepsy [Recovered/Resolved]
  - Mental disorder [Unknown]
  - Limb discomfort [Unknown]
  - Feeling abnormal [Unknown]
  - Seizure [Recovered/Resolved]
  - Movement disorder [Unknown]
  - Dizziness [Unknown]
  - Disturbance in attention [Unknown]

NARRATIVE: CASE EVENT DATE: 20150804
